FAERS Safety Report 6093139-9 (Version None)
Quarter: 2009Q1

REPORT INFORMATION
  Report Type: 
  Country: None (occurrence: None)
  Receive Date: 20090226
  Receipt Date: 20090217
  Transmission Date: 20090719
  Serious: Yes (Other)
  Sender: FDA-Public Use
  Company Number: FR-PFIZER INC-2009159487

PATIENT

DRUGS (4)
  1. TAHOR [Suspect]
     Indication: ACUTE CORONARY SYNDROME
     Dosage: 80 MG, UNK
     Dates: start: 20090116, end: 20090101
  2. KARDEGIC [Concomitant]
     Dosage: UNK
  3. BETA BLOCKING AGENTS [Concomitant]
     Dosage: UNK
  4. DRUG, UNSPECIFIED [Concomitant]
     Dosage: UNK

REACTIONS (2)
  - CHOLESTASIS [None]
  - GAMMA-GLUTAMYLTRANSFERASE INCREASED [None]
